FAERS Safety Report 24111568 (Version 1)
Quarter: 2024Q3

REPORT INFORMATION
  Report Type: Report from Study
  Country: IE (occurrence: IE)
  Receive Date: 20240718
  Receipt Date: 20240718
  Transmission Date: 20241016
  Serious: Yes (Other)
  Sender: ROCHE
  Company Number: IE-ROCHE-3490352

PATIENT
  Sex: Female

DRUGS (1)
  1. OCRELIZUMAB [Suspect]
     Active Substance: OCRELIZUMAB
     Indication: Product used for unknown indication
     Dosage: 600MGS X 2 VIALS 300MGS
     Route: 042

REACTIONS (3)
  - Fatigue [Not Recovered/Not Resolved]
  - Sinusitis [Unknown]
  - Dizziness [Unknown]

NARRATIVE: CASE EVENT DATE: 20240109
